FAERS Safety Report 5170470-2 (Version None)
Quarter: 2006Q4

REPORT INFORMATION
  Report Type: 
  Country: None (occurrence: None)
  Receive Date: 20061205
  Receipt Date: 20061121
  Transmission Date: 20070319
  Serious: Yes (Hospitalization, Other)
  Sender: FDA-Public Use
  Company Number: 2006142753

PATIENT
  Age: 66 Year
  Sex: Female

DRUGS (3)
  1. LIPITOR [Suspect]
     Indication: DYSLIPIDAEMIA
     Dosage: 20 MG (20 MG, 1 IN 1 D), ORAL
     Route: 048
     Dates: start: 20010101
  2. VALSARTAN [Concomitant]
  3. OMEPRAZOLE [Concomitant]

REACTIONS (5)
  - HEADACHE [None]
  - HYPERTENSION [None]
  - HYPOTHYROIDISM [None]
  - ISCHAEMIA [None]
  - NAUSEA [None]
